FAERS Safety Report 5723025-2 (Version None)
Quarter: 2008Q2

REPORT INFORMATION
  Report Type: 
  Country: None (occurrence: None)
  Receive Date: 20080425
  Receipt Date: 20080414
  Transmission Date: 20081010
  Serious: Yes (Hospitalization, Other)
  Sender: FDA-Public Use
  Company Number: 2008S1001727

PATIENT
  Age: 65 Year
  Sex: Male

DRUGS (2)
  1. SUNITINIB MALATE (SUNITINIB MALATE) (25 MG) [Suspect]
     Indication: METASTATIC RENAL CELL CARCINOMA
     Dosage: 25 MG, DAILY; ORAL
     Route: 048
     Dates: start: 20071204, end: 20071230
  2. LEVOTHYROXINE SODIUM [Suspect]
     Dosage: 150 UG;DAILY;ORAL
     Route: 048
     Dates: start: 20050519

REACTIONS (5)
  - ANAEMIA [None]
  - ASTHENIA [None]
  - DIALYSIS [None]
  - LOSS OF CONSCIOUSNESS [None]
  - RENAL FAILURE ACUTE [None]
